FAERS Safety Report 24618527 (Version 2)
Quarter: 2024Q4

REPORT INFORMATION
  Report Type: Spontaneous
  Country: US (occurrence: US)
  Receive Date: 20241114
  Receipt Date: 20241129
  Transmission Date: 20250114
  Serious: No
  Sender: ALEXION PHARMACEUTICALS
  Company Number: US-AstraZeneca-CH-00719374AP

PATIENT

DRUGS (1)
  1. BYDUREON BCISE [Suspect]
     Active Substance: EXENATIDE

REACTIONS (10)
  - Injection site haemorrhage [Unknown]
  - Injection site injury [Unknown]
  - Device malfunction [Unknown]
  - Incorrect dose administered by device [Unknown]
  - Dose calculation error [Unknown]
  - Inappropriate schedule of product administration [Unknown]
  - Stress [Unknown]
  - Frustration tolerance decreased [Unknown]
  - Device leakage [Unknown]
  - Abdominal discomfort [Unknown]
